FAERS Safety Report 7215109-7 (Version None)
Quarter: 2011Q1

REPORT INFORMATION
  Report Type: 
  Country: None (occurrence: None)
  Receive Date: 20110107
  Receipt Date: 20100825
  Transmission Date: 20110831
  Serious: No
  Sender: FDA-Public Use
  Company Number: A0877695A

PATIENT
  Age: 62 Year
  Sex: Male

DRUGS (6)
  1. LOVAZA [Suspect]
     Dosage: 4CAP PER DAY
     Route: 048
     Dates: start: 20091001
  2. TRICOR [Concomitant]
  3. METOPROLOL SUCCINATE [Concomitant]
  4. WARFARIN [Concomitant]
  5. ISOSORBIDE MONONITRATE [Concomitant]
  6. MULTI-VITAMIN [Concomitant]

REACTIONS (1)
  - DIARRHOEA [None]
